FAERS Safety Report 14152484 (Version 1)
Quarter: 2017Q4

REPORT INFORMATION
  Report Type: Spontaneous
  Country: US (occurrence: US)
  Receive Date: 20171102
  Receipt Date: 20171102
  Transmission Date: 20180321
  Serious: Yes (Other)
  Sender: FDA-Public Use
  Company Number: US-MYLANLABS-2017M1068265

PATIENT
  Age: 57 Year
  Sex: Male

DRUGS (1)
  1. ERLOTINIB [Suspect]
     Active Substance: ERLOTINIB
     Indication: DUCTAL ADENOCARCINOMA OF PANCREAS
     Dosage: 150MG DAILY
     Route: 065

REACTIONS (3)
  - Drug resistance [Unknown]
  - Acquired gene mutation [Unknown]
  - Drug eruption [Recovering/Resolving]
